FAERS Safety Report 20351457 (Version 1)
Quarter: 2022Q1

REPORT INFORMATION
  Report Type: Spontaneous
  Country: NL (occurrence: NL)
  Receive Date: 20220119
  Receipt Date: 20220119
  Transmission Date: 20220423
  Serious: Yes (Other)
  Sender: FDA-Public Use
  Company Number: None

PATIENT
  Age: 30 Year
  Sex: Male
  Weight: 105 kg

DRUGS (1)
  1. DEXAMETHASONE [Suspect]
     Active Substance: DEXAMETHASONE
     Indication: Coronavirus pneumonia
     Dosage: 3 A DAY, 2 DAYS. 4 MORE DAYS 1,5 A DAY, BRAND NAME NOT SPECIFIED, FORM STRENGTH: 4 MG, UNIT DOSE: 1
     Dates: start: 202112, end: 20211211

REACTIONS (4)
  - Bradycardia [Recovered/Resolved]
  - Asthenia [Recovered/Resolved]
  - Respiratory rate decreased [Recovered/Resolved]
  - Body temperature decreased [Recovered/Resolved]

NARRATIVE: CASE EVENT DATE: 20211209
